FAERS Safety Report 16546047 (Version 1)
Quarter: 2019Q3

REPORT INFORMATION
  Report Type: Spontaneous
  Country: US (occurrence: US)
  Receive Date: 20190709
  Receipt Date: 20190709
  Transmission Date: 20191004
  Serious: No
  Sender: FDA-Public Use
  Company Number: US-ASTELLAS-2018US031061

PATIENT
  Age: 71 Year
  Sex: Male

DRUGS (2)
  1. MYRBETRIQ [Suspect]
     Active Substance: MIRABEGRON
     Indication: HYPERTONIC BLADDER
     Route: 048
     Dates: start: 20180523, end: 20180610
  2. MYRBETRIQ [Suspect]
     Active Substance: MIRABEGRON
     Indication: POLLAKIURIA

REACTIONS (4)
  - Therapeutic product effect incomplete [Unknown]
  - Dizziness [Recovered/Resolved]
  - Dizziness postural [Recovered/Resolved]
  - Dysstasia [Recovered/Resolved]
